FAERS Safety Report 5524630-9 (Version None)
Quarter: 2007Q4

REPORT INFORMATION
  Report Type: 
  Country: None (occurrence: None)
  Receive Date: 20071123
  Receipt Date: 20071121
  Transmission Date: 20080405
  Serious: Yes (Hospitalization)
  Sender: FDA-Public Use
  Company Number: US-SHR-US-2007-021738

PATIENT
  Age: 52 Year
  Sex: Female

DRUGS (4)
  1. BETASERON [Suspect]
     Dosage: 4 MIU, EVERY 2D
     Route: 058
     Dates: start: 20070511, end: 20070101
  2. BETASERON [Suspect]
     Dosage: 6 MIU, EVERY 2D
     Route: 058
     Dates: start: 20070101, end: 20070701
  3. BETASERON [Suspect]
     Dosage: 4 MIU, EVERY 2D
     Route: 058
     Dates: start: 20070701
  4. COUMADIN [Concomitant]

REACTIONS (17)
  - ANKLE FRACTURE [None]
  - ARTHRALGIA [None]
  - BALANCE DISORDER [None]
  - CYSTITIS [None]
  - DEPRESSION [None]
  - FALL [None]
  - FIBULA FRACTURE [None]
  - GAIT DISTURBANCE [None]
  - HEADACHE [None]
  - INJECTION SITE BRUISING [None]
  - MALAISE [None]
  - MOBILITY DECREASED [None]
  - PAIN [None]
  - PYREXIA [None]
  - TENDON INJURY [None]
  - TIBIA FRACTURE [None]
  - TREMOR [None]
